FAERS Safety Report 13397159 (Version 1)
Quarter: 2017Q2

REPORT INFORMATION
  Report Type: Spontaneous
  Country: US (occurrence: US)
  Receive Date: 20170403
  Receipt Date: 20170403
  Transmission Date: 20170830
  Serious: Yes (Other)
  Sender: FDA-Public Use
  Company Number: US-B.I. PHARMACEUTICALS,INC./RIDGEFIELD-2017-BI-017629

PATIENT
  Sex: Male

DRUGS (5)
  1. DULCOLAX (BISACODYL) [Suspect]
     Active Substance: BISACODYL
     Indication: CONSTIPATION
     Dosage: 4 TABLETS PRN;  FORM STRENGTH: 5 MG; FORMULATION: TABLET? ADMINISTRATION CORRECT? NO ?ACTION(S) TAKE
     Route: 048
     Dates: start: 2012
  2. GLUCOSAMINE [Concomitant]
     Active Substance: GLUCOSAMINE
     Indication: PRODUCT USED FOR UNKNOWN INDICATION
     Route: 065
  3. DULCOLAX (BISACODYL) [Suspect]
     Active Substance: BISACODYL
     Dosage: TAKES 4 DULCOLAX LAXATIVE TABLETS EVERY FIFTH DAY
     Route: 048
     Dates: start: 2012
  4. BABY ASPIRIN [Concomitant]
     Active Substance: ASPIRIN
     Indication: PRODUCT USED FOR UNKNOWN INDICATION
     Route: 065
  5. ATORVASTATIN [Concomitant]
     Active Substance: ATORVASTATIN
     Indication: BLOOD CHOLESTEROL INCREASED
     Route: 065

REACTIONS (6)
  - Gastrointestinal carcinoma [Recovered/Resolved]
  - Muscle spasms [Unknown]
  - Gastrointestinal motility disorder [Not Recovered/Not Resolved]
  - Vomiting [Recovered/Resolved]
  - Medication error [Unknown]
  - Off label use [Unknown]

NARRATIVE: CASE EVENT DATE: 2012
